FAERS Safety Report 12389770 (Version 2)
Quarter: 2016Q2

REPORT INFORMATION
  Report Type: Spontaneous
  Country: BR (occurrence: BR)
  Receive Date: 20160520
  Receipt Date: 20160622
  Transmission Date: 20160815
  Serious: Yes (Other)
  Sender: FDA-Public Use
  Company Number: BR-AMGEN-BRASP2016063877

PATIENT
  Age: 59 Year
  Sex: Female
  Weight: 87 kg

DRUGS (6)
  1. ENBREL [Suspect]
     Active Substance: ETANERCEPT
     Indication: RHEUMATOID ARTHRITIS
     Dosage: 50 MG, ONCE WEEKLY
     Route: 065
     Dates: start: 2012
  2. VASOPRIL [Concomitant]
     Active Substance: FOSINOPRIL
     Indication: HYPERTENSION
     Dosage: UNK
     Dates: start: 2013
  3. LEVOID [Concomitant]
     Active Substance: LEVOTHYROXINE
     Indication: THYROID DISORDER
     Dosage: UNK
     Dates: start: 2006
  4. MONTELAIR [Concomitant]
     Active Substance: MONTELUKAST SODIUM
     Indication: ASTHMA
     Dosage: UNK
     Dates: start: 2015
  5. BETAVERT [Concomitant]
     Indication: LABYRINTHITIS
     Dosage: UNK
     Dates: start: 1995
  6. FOSTAIR [Concomitant]
     Active Substance: BECLOMETHASONE\FORMOTEROL
     Indication: ASTHMA
     Dosage: UNK
     Dates: start: 201509

REACTIONS (4)
  - Rash morbilliform [Unknown]
  - Flavivirus infection [Unknown]
  - Infarction [Unknown]
  - Rash pustular [Unknown]

NARRATIVE: CASE EVENT DATE: 201508
